FAERS Safety Report 12080180 (Version 1)
Quarter: 2016Q1

REPORT INFORMATION
  Report Type: Spontaneous
  Country: US (occurrence: US)
  Receive Date: 20160216
  Receipt Date: 20160216
  Transmission Date: 20160526
  Serious: No
  Sender: FDA-Public Use
  Company Number: US-GLAXOSMITHKLINE-US2016018223

PATIENT
  Sex: Male

DRUGS (7)
  1. DICLOFENAC [Concomitant]
     Active Substance: DICLOFENAC
  2. WELLBUTRIN SR [Suspect]
     Active Substance: BUPROPION HYDROCHLORIDE
     Indication: DEPRESSION
  3. WELLBUTRIN SR [Suspect]
     Active Substance: BUPROPION HYDROCHLORIDE
     Indication: MALAISE
  4. WELLBUTRIN SR [Suspect]
     Active Substance: BUPROPION HYDROCHLORIDE
     Indication: SUICIDAL IDEATION
  5. WELLBUTRIN SR [Suspect]
     Active Substance: BUPROPION HYDROCHLORIDE
     Indication: SEASONAL AFFECTIVE DISORDER
     Dosage: 150 MG, QD
     Route: 048
     Dates: start: 2008
  6. BUPROPION SR PROLONGED-RELEASE TABLET [Suspect]
     Active Substance: BUPROPION
     Indication: SEASONAL AFFECTIVE DISORDER
     Dosage: 150 MG, BID
     Route: 048
     Dates: start: 2009, end: 2013
  7. ATORVASTATIN [Concomitant]
     Active Substance: ATORVASTATIN

REACTIONS (13)
  - Drug ineffective [Recovered/Resolved]
  - Hyperphagia [Unknown]
  - Blood cholesterol increased [Unknown]
  - Product substitution issue [Unknown]
  - Feeling abnormal [Unknown]
  - Arthritis [Unknown]
  - Inability to afford medication [Unknown]
  - Nausea [Unknown]
  - Abdominal discomfort [Unknown]
  - Nightmare [Unknown]
  - Somnolence [Unknown]
  - Decreased activity [Unknown]
  - Intentional product use issue [Unknown]

NARRATIVE: CASE EVENT DATE: 2009
